FAERS Safety Report 7056838-8 (Version None)
Quarter: 2010Q4

REPORT INFORMATION
  Report Type: 
  Country: None (occurrence: None)
  Receive Date: 20101022
  Receipt Date: 20100702
  Transmission Date: 20110411
  Serious: No
  Sender: FDA-Public Use
  Company Number: A0868406A

PATIENT
  Sex: Female

DRUGS (1)
  1. DUAC [Suspect]
     Dosage: 1APP SINGLE DOSE
     Route: 061

REACTIONS (2)
  - NIGHT SWEATS [None]
  - PANIC REACTION [None]
